FAERS Safety Report 15559398 (Version 1)
Quarter: 2018Q4

REPORT INFORMATION
  Report Type: Spontaneous
  Country: GB (occurrence: GB)
  Receive Date: 20181029
  Receipt Date: 20181029
  Transmission Date: 20190205
  Serious: Yes (Other)
  Sender: FDA-Public Use
  Company Number: GB-ACCORD-073932

PATIENT
  Age: 4 Year
  Sex: Female
  Weight: 23 kg

DRUGS (3)
  1. SALBUTAMOL [Concomitant]
     Active Substance: ALBUTEROL
  2. CLENIL MODULITE [Concomitant]
     Active Substance: BECLOMETHASONE DIPROPIONATE
     Dosage: SINCE A BABY
  3. MONTELUKAST [Suspect]
     Active Substance: MONTELUKAST SODIUM
     Indication: ASTHMA
     Route: 048
     Dates: start: 20170410, end: 20171201

REACTIONS (2)
  - Abnormal weight gain [Recovered/Resolved]
  - Cushingoid [Recovered/Resolved]

NARRATIVE: CASE EVENT DATE: 20170501
